FAERS Safety Report 7555902-4 (Version None)
Quarter: 2011Q2

REPORT INFORMATION
  Report Type: 
  Country: None (occurrence: None)
  Receive Date: 20110618
  Receipt Date: 20110606
  Transmission Date: 20111010
  Serious: Yes (Other)
  Sender: FDA-Public Use
  Company Number: ES-BAYER-2011-048800

PATIENT
  Age: 80 Year
  Sex: Male

DRUGS (3)
  1. PAROXETINE HCL [Concomitant]
     Dosage: 1/28 DAYS
  2. MOXIFLOXACIN [Suspect]
     Dosage: UNK
     Route: 048
     Dates: start: 20110530, end: 20110603
  3. LEXATIN [Concomitant]
     Dosage: 1.5 MG, BID 0-1-1

REACTIONS (2)
  - VISION BLURRED [None]
  - DIPLOPIA [None]
